FAERS Safety Report 6216647-6 (Version None)
Quarter: 2009Q2

REPORT INFORMATION
  Report Type: 
  Country: None (occurrence: None)
  Receive Date: 20090603
  Receipt Date: 20090603
  Transmission Date: 20091009
  Serious: Yes (Other)
  Sender: FDA-Public Use
  Company Number: None

PATIENT
  Age: 34 Year
  Sex: Female
  Weight: 52.6173 kg

DRUGS (1)
  1. ADDERALL 20 [Suspect]
     Indication: ATTENTION DEFICIT/HYPERACTIVITY DISORDER
     Dates: start: 20090203, end: 20090501

REACTIONS (10)
  - ACNE [None]
  - ANOREXIA [None]
  - DEHYDRATION [None]
  - DEPENDENCE [None]
  - EYE DISORDER [None]
  - GASTRIC DISORDER [None]
  - INSOMNIA [None]
  - MAJOR DEPRESSION [None]
  - MOOD ALTERED [None]
  - WEIGHT DECREASED [None]
